FAERS Safety Report 5292310-3 (Version None)
Quarter: 2007Q2

REPORT INFORMATION
  Report Type: 
  Country: None (occurrence: None)
  Receive Date: 20070410
  Receipt Date: 20070329
  Transmission Date: 20071010
  Serious: Yes (Death, Other)
  Sender: FDA-Public Use
  Company Number: GBWYE248129MAR07

PATIENT
  Age: 29 Year
  Sex: Male

DRUGS (4)
  1. VENLAFAXINE HYDROCHLORIDE [Suspect]
     Dosage: UNKNOWN
  2. CANNABIS [Interacting]
     Dosage: UNKNOWN
  3. ANTIDEPRESSANTS [Interacting]
     Dosage: UNKNOWN
  4. ALCOHOL [Suspect]
     Dosage: UNKNOWN

REACTIONS (7)
  - ALCOHOL INTERACTION [None]
  - COGNITIVE DISORDER [None]
  - DRUG INTERACTION [None]
  - MULTIPLE INJURIES [None]
  - ROAD TRAFFIC ACCIDENT [None]
  - SPLENIC RUPTURE [None]
  - STERNAL FRACTURE [None]
